FAERS Safety Report 7940354-2 (Version None)
Quarter: 2011Q4

REPORT INFORMATION
  Report Type: 
  Country: None (occurrence: None)
  Receive Date: 20111127
  Receipt Date: 20111115
  Transmission Date: 20120403
  Serious: Yes (Hospitalization, Other)
  Sender: FDA-Public Use
  Company Number: US-ELI_LILLY_AND_COMPANY-US201105006000

PATIENT
  Sex: Female

DRUGS (2)
  1. FORTEO [Suspect]
     Indication: OSTEOPOROSIS
     Dosage: 20 UG, QD
     Dates: start: 20110325
  2. FORTEO [Suspect]
     Dosage: 20 UG, QD
     Route: 065

REACTIONS (11)
  - SKIN EXFOLIATION [None]
  - HIP FRACTURE [None]
  - HERPES ZOSTER [None]
  - PAIN [None]
  - FALL [None]
  - CONTUSION [None]
  - HIP ARTHROPLASTY [None]
  - FEELING ABNORMAL [None]
  - BACK PAIN [None]
  - RASH [None]
  - SKIN DISCOLOURATION [None]
